FAERS Safety Report 11492575 (Version 1)
Quarter: 2015Q3

REPORT INFORMATION
  Report Type: Spontaneous
  Country: US (occurrence: None)
  Receive Date: 20150910
  Receipt Date: 20150910
  Transmission Date: 20151125
  Serious: Yes (Hospitalization, Disabling)
  Sender: FDA-Public Use
  Company Number: None

PATIENT
  Age: 56 Year
  Sex: Female
  Weight: 190 kg

DRUGS (11)
  1. ZOLOFT [Concomitant]
     Active Substance: SERTRALINE HYDROCHLORIDE
  2. ACIPHEX [Concomitant]
     Active Substance: RABEPRAZOLE SODIUM
  3. MULTI VITAMINS [Concomitant]
  4. LAMICTAL [Concomitant]
     Active Substance: LAMOTRIGINE
  5. XANAX [Concomitant]
     Active Substance: ALPRAZOLAM
  6. KLOMOPIN [Concomitant]
  7. ZONOGRAN [Concomitant]
  8. VITAMIN D [Concomitant]
     Active Substance: CHOLECALCIFEROL
  9. KEPPRA [Suspect]
     Active Substance: LEVETIRACETAM
     Indication: SEIZURE
     Route: 048
     Dates: start: 20150515
  10. DILANTIN [Concomitant]
     Active Substance: PHENYTOIN
  11. SYNTHROID [Concomitant]
     Active Substance: LEVOTHYROXINE SODIUM

REACTIONS (25)
  - Discomfort [None]
  - Somnolence [None]
  - Neck pain [None]
  - Crying [None]
  - Fatigue [None]
  - Mental disorder [None]
  - Anxiety [None]
  - Mood altered [None]
  - Bedridden [None]
  - Confusional state [None]
  - Anger [None]
  - Personality change [None]
  - Dry mouth [None]
  - Chills [None]
  - Dry skin [None]
  - Abdominal pain [None]
  - Feeling abnormal [None]
  - Irritability [None]
  - Back pain [None]
  - Tremor [None]
  - Activities of daily living impaired [None]
  - Muscular weakness [None]
  - Disturbance in attention [None]
  - Balance disorder [None]
  - Product quality issue [None]

NARRATIVE: CASE EVENT DATE: 20150515
